FAERS Safety Report 8464014-7 (Version None)
Quarter: 2012Q2

REPORT INFORMATION
  Report Type: 
  Country: None (occurrence: None)
  Receive Date: 20120625
  Receipt Date: 20120620
  Transmission Date: 20120825
  Serious: Yes (Hospitalization, Other)
  Sender: FDA-Public Use
  Company Number: US-JNJFOC-20100805201

PATIENT
  Sex: Male

DRUGS (5)
  1. LEVAQUIN [Suspect]
     Indication: INFECTION
     Route: 048
     Dates: start: 20080624, end: 20080630
  2. LEVAQUIN [Suspect]
     Indication: PHARYNGITIS
     Route: 048
     Dates: start: 20080624, end: 20080630
  3. LEVAQUIN [Suspect]
     Route: 048
  4. LEVAQUIN [Suspect]
     Route: 048
     Dates: start: 20080624, end: 20080630
  5. LEVAQUIN [Suspect]
     Indication: TRACHEOBRONCHITIS
     Route: 048

REACTIONS (3)
  - TENDON RUPTURE [None]
  - JOINT DISLOCATION [None]
  - CELLULITIS [None]
